FAERS Safety Report 23096820 (Version 6)
Quarter: 2025Q2

REPORT INFORMATION
  Report Type: Spontaneous
  Country: CA (occurrence: CA)
  Receive Date: 20231023
  Receipt Date: 20250409
  Transmission Date: 20250717
  Serious: Yes (Other)
  Sender: PFIZER
  Company Number: CA-MLMSERVICE-20231010-4589370-1

PATIENT
  Age: 71 Year
  Sex: Female

DRUGS (20)
  1. LEVOFLOXACIN [Suspect]
     Active Substance: LEVOFLOXACIN
     Indication: Pneumonia
     Route: 065
     Dates: start: 2016
  2. LEVOFLOXACIN [Suspect]
     Active Substance: LEVOFLOXACIN
     Indication: Bronchitis
     Dates: start: 2019
  3. AMOXICILLIN\CLAVULANIC ACID [Suspect]
     Active Substance: AMOXICILLIN\CLAVULANIC ACID
     Indication: Pneumonia
     Dates: start: 2018
  4. AMOXICILLIN\CLAVULANIC ACID [Suspect]
     Active Substance: AMOXICILLIN\CLAVULANIC ACID
     Route: 065
  5. CEFADROXIL [Suspect]
     Active Substance: CEFADROXIL
     Indication: Cellulitis
     Dates: start: 2015
  6. CEFADROXIL [Suspect]
     Active Substance: CEFADROXIL
     Route: 065
  7. MOXIFLOXACIN [Suspect]
     Active Substance: MOXIFLOXACIN
     Indication: Pneumonia
     Dates: start: 2017
  8. MOXIFLOXACIN [Suspect]
     Active Substance: MOXIFLOXACIN
     Route: 065
  9. DURVALUMAB [Concomitant]
     Active Substance: DURVALUMAB
     Indication: Metastases to lymph nodes
     Dates: start: 2015, end: 2016
  10. DURVALUMAB [Concomitant]
     Active Substance: DURVALUMAB
     Indication: Malignant melanoma
     Dates: start: 2016, end: 2017
  11. DURVALUMAB [Concomitant]
     Active Substance: DURVALUMAB
  12. IPILIMUMAB [Concomitant]
     Active Substance: IPILIMUMAB
     Indication: Disease progression
     Dates: start: 201812, end: 2019
  13. IPILIMUMAB [Concomitant]
     Active Substance: IPILIMUMAB
     Indication: Malignant melanoma
  14. IPILIMUMAB [Concomitant]
     Active Substance: IPILIMUMAB
     Indication: Metastases to lymph nodes
  15. NIVOLUMAB [Concomitant]
     Active Substance: NIVOLUMAB
     Indication: Metastases to lymph nodes
     Dates: start: 2018
  16. NIVOLUMAB [Concomitant]
     Active Substance: NIVOLUMAB
     Indication: Disease progression
     Dates: start: 202107
  17. NIVOLUMAB [Concomitant]
     Active Substance: NIVOLUMAB
     Indication: Malignant melanoma
  18. TRAMETINIB [Concomitant]
     Active Substance: TRAMETINIB
     Indication: Metastases to lymph nodes
     Dates: start: 2015, end: 2016
  19. TRAMETINIB [Concomitant]
     Active Substance: TRAMETINIB
     Indication: Malignant melanoma
     Dates: start: 2016, end: 2017
  20. TRAMETINIB [Concomitant]
     Active Substance: TRAMETINIB

REACTIONS (1)
  - Dysbiosis [Recovering/Resolving]

NARRATIVE: CASE EVENT DATE: 20210701
